FAERS Safety Report 18921688 (Version 1)
Quarter: 2021Q1

REPORT INFORMATION
  Report Type: Spontaneous
  Country: US (occurrence: US)
  Receive Date: 20210219
  Receipt Date: 20210219
  Transmission Date: 20210420
  Serious: Yes (Hospitalization)
  Sender: FDA-Public Use
  Company Number: None

PATIENT
  Age: 67 Year
  Sex: Male

DRUGS (1)
  1. TEMOZOLOMIDE 140 MG SUN PHARMACEUTICALS [Suspect]
     Active Substance: TEMOZOLOMIDE
     Indication: BRAIN NEOPLASM MALIGNANT
     Dosage: 140MG 1 CAP ONCE DAILY ORAL
     Route: 048
     Dates: start: 20210206

REACTIONS (2)
  - Dehydration [None]
  - Swelling [None]

NARRATIVE: CASE EVENT DATE: 20210216
